FAERS Safety Report 21195251 (Version 1)
Quarter: 2022Q3

REPORT INFORMATION
  Report Type: Spontaneous
  Country: US (occurrence: None)
  Receive Date: 20220809
  Receipt Date: 20220809
  Transmission Date: 20221027
  Serious: Yes (Hospitalization)
  Sender: FDA-Public Use
  Company Number: None

PATIENT
  Sex: Female

DRUGS (2)
  1. NUCALA [Suspect]
     Active Substance: MEPOLIZUMAB
     Indication: Asthma
     Dosage: START DATE: FIRST FILL WITH ARX??INJECT 1 PEN UNDER THE SKIN (SUBCUTANEOUS INJECTION) EVERY FOUR WEE
  2. TOBRAMYCIN [Suspect]
     Active Substance: TOBRAMYCIN
     Indication: Asthma
     Dosage: 300MG (5ML) BID X 28 DAYS VIA NEBULIZER
     Route: 058
     Dates: start: 20220518

REACTIONS (2)
  - Quality of life decreased [None]
  - Dyspnoea [None]
